FAERS Safety Report 13078587 (Version 3)
Quarter: 2017Q1

REPORT INFORMATION
  Report Type: Spontaneous
  Country: IT (occurrence: IT)
  Receive Date: 20170102
  Receipt Date: 20170111
  Transmission Date: 20170428
  Serious: Yes (Life-Threatening, Other)
  Sender: FDA-Public Use
  Company Number: IT-TEVA-724493ACC

PATIENT
  Age: 41 Year
  Sex: Male

DRUGS (2)
  1. EFFENTORA [Suspect]
     Active Substance: FENTANYL CITRATE
     Route: 002
     Dates: start: 201404, end: 201410
  2. EFFENTORA [Suspect]
     Active Substance: FENTANYL CITRATE
     Indication: PHANTOM PAIN
     Route: 002
     Dates: start: 2013, end: 201404

REACTIONS (8)
  - Pain [Unknown]
  - Incorrect dose administered [Unknown]
  - Drug dependence [Unknown]
  - Withdrawal syndrome [Recovered/Resolved]
  - Off label use [Unknown]
  - Drug prescribing error [Unknown]
  - Neuroma [Unknown]
  - Drug tolerance [Unknown]

NARRATIVE: CASE EVENT DATE: 20140519
